FAERS Safety Report 6272517-9 (Version None)
Quarter: 2009Q3

REPORT INFORMATION
  Report Type: 
  Country: None (occurrence: None)
  Receive Date: 20090717
  Receipt Date: 20090707
  Transmission Date: 20100115
  Serious: Yes (Other)
  Sender: FDA-Public Use
  Company Number: JP-PFIZER INC-2009239613

PATIENT
  Age: 30 Year

DRUGS (6)
  1. ZOLOFT [Suspect]
     Dosage: 25 MG, 3X/DAY
     Dates: start: 20090623
  2. SELBEX [Concomitant]
     Route: 048
  3. LUVOX [Concomitant]
     Route: 048
  4. SERENAL [Concomitant]
     Route: 048
  5. ZYPREXA [Concomitant]
     Route: 048
  6. LAXOBERON [Concomitant]
     Route: 048

REACTIONS (2)
  - DEPRESSED LEVEL OF CONSCIOUSNESS [None]
  - SOMNOLENCE [None]
